FAERS Safety Report 8138181-9 (Version None)
Quarter: 2012Q1

REPORT INFORMATION
  Report Type: 
  Country: None (occurrence: None)
  Receive Date: 20120213
  Receipt Date: 20120131
  Transmission Date: 20120608
  Serious: Yes (Hospitalization, Other)
  Sender: FDA-Public Use
  Company Number: ADR-2012-00289

PATIENT
  Sex: Female

DRUGS (2)
  1. LIORESAL [Suspect]
     Indication: MUSCLE SPASTICITY
     Dosage: 1558.9MCG/DAY
     Route: 037
  2. LIORESAL [Suspect]
     Indication: BRAIN INJURY
     Dosage: 1558.9MCG/DAY
     Route: 037

REACTIONS (15)
  - DRUG DOSE OMISSION [None]
  - HALLUCINATION, VISUAL [None]
  - BALANCE DISORDER [None]
  - DRUG WITHDRAWAL CONVULSIONS [None]
  - DISORIENTATION [None]
  - VOMITING [None]
  - CONFUSIONAL STATE [None]
  - IRRITABILITY [None]
  - CRYING [None]
  - MEMORY IMPAIRMENT [None]
  - AGGRESSION [None]
  - FEELING JITTERY [None]
  - PRURITUS [None]
  - INSOMNIA [None]
  - DEVICE MALFUNCTION [None]
